FAERS Safety Report 12787003 (Version 1)
Quarter: 2016Q3

REPORT INFORMATION
  Report Type: Spontaneous
  Country: BR (occurrence: BR)
  Receive Date: 20160928
  Receipt Date: 20160928
  Transmission Date: 20161109
  Serious: Yes (Hospitalization)
  Sender: FDA-Public Use
  Company Number: BR-ABBVIE-16P-020-1691771-00

PATIENT
  Age: 1 Year
  Sex: Male

DRUGS (2)
  1. KLARICID [Suspect]
     Active Substance: CLARITHROMYCIN
     Indication: PYREXIA
     Dosage: KLARICID WITH YELLOW COLOR WAS RECONSTITUTED 1 MONTH AGO; ADMINISTERED AT NIGHT
     Route: 065
     Dates: start: 20160711, end: 20160713
  2. KLARICID [Suspect]
     Active Substance: CLARITHROMYCIN
     Indication: PHARYNGEAL INFLAMMATION
     Route: 065

REACTIONS (5)
  - Weight decreased [Recovered/Resolved]
  - Hypophagia [Recovered/Resolved]
  - Wrong technique in product usage process [Unknown]
  - Vomiting [Recovered/Resolved]
  - Decreased appetite [Recovered/Resolved]

NARRATIVE: CASE EVENT DATE: 201607
